FAERS Safety Report 9365959 (Version 3)
Quarter: 2013Q3

REPORT INFORMATION
  Report Type: Spontaneous
  Country: US (occurrence: US)
  Receive Date: 20130625
  Receipt Date: 20130815
  Transmission Date: 20140515
  Serious: No
  Sender: FDA-Public Use
  Company Number: US-PFIZER INC-2013185150

PATIENT
  Sex: Female

DRUGS (1)
  1. EXEMESTANE [Suspect]
     Dosage: 25 MG, UNK
     Dates: start: 2013

REACTIONS (6)
  - Oral discomfort [Unknown]
  - Swollen tongue [Unknown]
  - Joint swelling [Unknown]
  - Weight increased [Unknown]
  - Dizziness [Unknown]
  - Paraesthesia [Not Recovered/Not Resolved]
